FAERS Safety Report 12900488 (Version 7)
Quarter: 2017Q2

REPORT INFORMATION
  Report Type: Spontaneous
  Country: US (occurrence: US)
  Receive Date: 20161101
  Receipt Date: 20170516
  Transmission Date: 20170830
  Serious: Yes (Other)
  Sender: FDA-Public Use
  Company Number: US-INCYTE CORPORATION-2016IN006709

PATIENT
  Age: 79 Year
  Sex: Female

DRUGS (2)
  1. JAKAFI [Suspect]
     Active Substance: RUXOLITINIB
     Indication: POLYCYTHAEMIA VERA
     Dosage: 10 MG, BID
     Route: 048
     Dates: start: 20160910
  2. JAKAFI [Suspect]
     Active Substance: RUXOLITINIB
     Dosage: 5 MG, BID
     Route: 048
     Dates: start: 20161208

REACTIONS (13)
  - Flatulence [Unknown]
  - White blood cell count decreased [Recovered/Resolved]
  - Diarrhoea [Unknown]
  - Erythema [Recovered/Resolved]
  - Petechiae [Not Recovered/Not Resolved]
  - Acne [Not Recovered/Not Resolved]
  - Haemoglobin decreased [Unknown]
  - Somnolence [Unknown]
  - Skin irritation [Unknown]
  - Asthenia [Unknown]
  - White blood cell count increased [Unknown]
  - Thrombosis [Unknown]
  - Fatigue [Unknown]

NARRATIVE: CASE EVENT DATE: 2016
